FAERS Safety Report 5996721-X (Version None)
Quarter: 2008Q4

REPORT INFORMATION
  Report Type: 
  Country: None (occurrence: None)
  Receive Date: 20081212
  Receipt Date: 20081023
  Transmission Date: 20090506
  Serious: No
  Sender: FDA-Public Use
  Company Number: US-ABBOTT-08P-163-0483500-00

PATIENT
  Sex: Female
  Weight: 72.64 kg

DRUGS (6)
  1. HUMIRA [Suspect]
     Indication: ANKYLOSING SPONDYLITIS
     Route: 058
     Dates: start: 20080917, end: 20080917
  2. HUMIRA [Suspect]
     Indication: INFLAMMATORY BOWEL DISEASE
     Dates: start: 20080922, end: 20080922
  3. HUMIRA [Suspect]
     Dosage: LOADING DOSE
     Dates: start: 20081006, end: 20081006
  4. HUMIRA [Suspect]
  5. HUMIRA [Suspect]
     Indication: ANKYLOSING SPONDYLITIS
     Dates: start: 20081021, end: 20081021
  6. HUMIRA [Suspect]
     Indication: INFLAMMATORY BOWEL DISEASE

REACTIONS (5)
  - DRUG DELIVERY SYSTEM MALFUNCTION [None]
  - INCORRECT DOSE ADMINISTERED [None]
  - INFLAMMATORY BOWEL DISEASE [None]
  - INJECTION SITE PAIN [None]
  - INJECTION SITE URTICARIA [None]
